FAERS Safety Report 20973052 (Version 1)
Quarter: 2022Q2

REPORT INFORMATION
  Report Type: Spontaneous
  Country: US (occurrence: US)
  Receive Date: 20220617
  Receipt Date: 20220617
  Transmission Date: 20220721
  Serious: Yes (Other)
  Sender: FDA-Public Use
  Company Number: US-SPECGX-T202201388

PATIENT
  Age: 21 Year
  Sex: Male

DRUGS (1)
  1. FENTANYL CITRATE [Suspect]
     Active Substance: FENTANYL CITRATE
     Indication: Product used for unknown indication
     Dosage: UNK
     Route: 042

REACTIONS (5)
  - Cerebral atrophy [Unknown]
  - Anterograde amnesia [Unknown]
  - Drug abuse [Unknown]
  - Overdose [Unknown]
  - Incorrect route of product administration [Unknown]
